FAERS Safety Report 6228160-0 (Version None)
Quarter: 2009Q2

REPORT INFORMATION
  Report Type: 
  Country: None (occurrence: None)
  Receive Date: 20090612
  Receipt Date: 20090610
  Transmission Date: 20091009
  Serious: Yes (Death)
  Sender: FDA-Public Use
  Company Number: DE-BRISTOL-MYERS SQUIBB COMPANY-14652416

PATIENT
  Age: 57 Year
  Sex: Male
  Weight: 52 kg

DRUGS (6)
  1. CETUXIMAB [Suspect]
     Indication: GASTRIC CANCER
     Dosage: FIRST REGIMEN:13MAY09-22MAY09(400 MG/M2) REGIMEN 2:22MAY09-STOPPED CETUXIMAB 2MG/ML
     Route: 042
     Dates: start: 20090513, end: 20090522
  2. CISPLATIN [Suspect]
     Indication: GASTRIC CANCER
     Dosage: INITIAL DOSE:13MAY09-STOPPED
     Route: 042
     Dates: start: 20090513, end: 20090513
  3. TAXOTERE [Suspect]
     Indication: GASTRIC CANCER
     Dosage: INITIAL DOSE:13MAY09-STOPPED
     Route: 042
     Dates: start: 20090513, end: 20090513
  4. EMEND [Concomitant]
  5. ZOFRAN [Concomitant]
     Route: 048
  6. FORTECORTIN [Concomitant]
     Route: 048

REACTIONS (1)
  - PULMONARY EMBOLISM [None]
